FAERS Safety Report 6304930-5 (Version None)
Quarter: 2009Q3

REPORT INFORMATION
  Report Type: 
  Country: None (occurrence: None)
  Receive Date: 20090811
  Receipt Date: 20090805
  Transmission Date: 20100115
  Serious: Yes (Other)
  Sender: FDA-Public Use
  Company Number: US-AVENTIS-200914244US

PATIENT
  Sex: Female

DRUGS (3)
  1. LANTUS [Suspect]
     Dosage: DOSE: UNK
     Route: 058
     Dates: start: 20040101, end: 20090101
  2. LANTUS [Suspect]
     Route: 058
     Dates: start: 20040101, end: 20090101
  3. OPTICLIK (INSULIN INJECTION PEN) [Suspect]
     Dates: start: 20070101, end: 20090101

REACTIONS (1)
  - PANCREATIC DISORDER [None]
